FAERS Safety Report 14909178 (Version 9)
Quarter: 2018Q3

REPORT INFORMATION
  Report Type: Spontaneous
  Country: US (occurrence: US)
  Receive Date: 20180517
  Receipt Date: 20180927
  Transmission Date: 20181010
  Serious: No
  Sender: FDA-Public Use
  Company Number: US-PFIZER INC-2018198653

PATIENT
  Age: 62 Year
  Sex: Female
  Weight: 88 kg

DRUGS (9)
  1. SUTENT [Suspect]
     Active Substance: SUNITINIB MALATE
     Dosage: 37.5 MG, CYCLIC (2 WEEKS ON/1 WEEK OFF/28 DAYS ON / 14 DAYS OFF )
     Dates: start: 201805
  2. SUTENT [Suspect]
     Active Substance: SUNITINIB MALATE
     Indication: RENAL CANCER STAGE IV
     Dosage: 50 MG, CYCLIC (28 DAYS ON/14 DAYS OFF)
     Dates: start: 20180504, end: 201805
  3. MAGNESIUM [Concomitant]
     Active Substance: MAGNESIUM
     Indication: MUSCLE SPASMS
     Dosage: UNK, AS NEEDED
  4. IMODIUM [Concomitant]
     Active Substance: LOPERAMIDE HYDROCHLORIDE
     Dosage: UNK
  5. AMBIEN [Concomitant]
     Active Substance: ZOLPIDEM TARTRATE
     Dosage: UNK
  6. VITAMIN C [Concomitant]
     Active Substance: ASCORBIC ACID
     Dosage: UNK
  7. VITAMIN D [Concomitant]
     Active Substance: CHOLECALCIFEROL
     Dosage: UNK
  8. AMLODIPINE [Concomitant]
     Active Substance: AMLODIPINE BESYLATE
     Dosage: UNK
  9. BENICAR HCT [Concomitant]
     Active Substance: HYDROCHLOROTHIAZIDE\OLMESARTAN MEDOXOMIL
     Dosage: UNK

REACTIONS (51)
  - Blood pressure increased [Recovering/Resolving]
  - Dizziness [Unknown]
  - Dry mouth [Unknown]
  - Abdominal discomfort [Unknown]
  - Viral infection [Unknown]
  - Condition aggravated [Not Recovered/Not Resolved]
  - Flatulence [Unknown]
  - Malaise [Unknown]
  - Asthenia [Unknown]
  - Tongue discolouration [Recovered/Resolved]
  - Tooth discolouration [Unknown]
  - Perineal pain [Not Recovered/Not Resolved]
  - Dysphagia [Unknown]
  - Hair texture abnormal [Unknown]
  - Faeces discoloured [Unknown]
  - Anxiety [Unknown]
  - Pollakiuria [Unknown]
  - Glossodynia [Unknown]
  - Proctalgia [Recovering/Resolving]
  - Dehydration [Unknown]
  - Tongue discomfort [Unknown]
  - Nasopharyngitis [Not Recovered/Not Resolved]
  - Stomatitis [Recovered/Resolved]
  - Swollen tongue [Unknown]
  - Vulval disorder [Unknown]
  - Dyspepsia [Unknown]
  - Ageusia [Unknown]
  - Alopecia [Unknown]
  - Blood calcium increased [Unknown]
  - Oral pain [Unknown]
  - Frequent bowel movements [Unknown]
  - Haemorrhoids [Unknown]
  - Gingival discolouration [Unknown]
  - Platelet count decreased [Recovering/Resolving]
  - Insomnia [Unknown]
  - Migraine with aura [Not Recovered/Not Resolved]
  - Chromaturia [Unknown]
  - Oral mucosal blistering [Unknown]
  - Oropharyngeal pain [Unknown]
  - Pyrexia [Unknown]
  - Madarosis [Unknown]
  - Dysgeusia [Unknown]
  - Feeling abnormal [Unknown]
  - Muscle spasms [Unknown]
  - Musculoskeletal stiffness [Unknown]
  - Hunger [Unknown]
  - Fatigue [Recovering/Resolving]
  - Tongue disorder [Unknown]
  - Diarrhoea [Unknown]
  - Vomiting [Unknown]
  - Hair colour changes [Unknown]

NARRATIVE: CASE EVENT DATE: 2018
